FAERS Safety Report 5839259-2 (Version None)
Quarter: 2008Q3

REPORT INFORMATION
  Report Type: 
  Country: None (occurrence: None)
  Receive Date: 20080808
  Receipt Date: 20080728
  Transmission Date: 20090109
  Serious: Yes (Other)
  Sender: FDA-Public Use
  Company Number: US-PFIZER INC-2008063187

PATIENT
  Sex: Male
  Weight: 106 kg

DRUGS (8)
  1. CHANTIX [Suspect]
     Indication: SMOKING CESSATION THERAPY
     Dates: start: 20080628, end: 20080725
  2. ADDERALL 10 [Concomitant]
  3. ZYPREXA [Concomitant]
  4. TOPAMAX [Concomitant]
  5. HYDROXYZINE [Concomitant]
  6. BUPRENORPHINE HYDROCHLORIDE/NALOXONE HYDROCHLORIDE [Concomitant]
  7. NEURONTIN [Concomitant]
  8. SEROQUEL [Concomitant]

REACTIONS (3)
  - DEPRESSION [None]
  - GENERALISED ANXIETY DISORDER [None]
  - PANIC ATTACK [None]
